FAERS Safety Report 23352090 (Version 6)
Quarter: 2025Q2

REPORT INFORMATION
  Report Type: Spontaneous
  Country: FR (occurrence: FR)
  Receive Date: 20231229
  Receipt Date: 20250414
  Transmission Date: 20250716
  Serious: Yes (Other)
  Sender: MYLAN
  Company Number: FR-ROCHE-3434940

PATIENT
  Age: 7 Year
  Sex: Female
  Weight: 24.1 kg

DRUGS (148)
  1. METHOTREXATE [Suspect]
     Active Substance: METHOTREXATE
     Indication: B-cell lymphoma
  2. METHOTREXATE [Suspect]
     Active Substance: METHOTREXATE
     Route: 037
  3. METHOTREXATE [Suspect]
     Active Substance: METHOTREXATE
     Route: 037
  4. METHOTREXATE [Suspect]
     Active Substance: METHOTREXATE
  5. HYDROCORTISONE [Suspect]
     Active Substance: HYDROCORTISONE
     Indication: B-cell lymphoma
     Dosage: 12 MILLIGRAM, QD
     Dates: start: 20230811
  6. HYDROCORTISONE [Suspect]
     Active Substance: HYDROCORTISONE
     Dosage: 12 MILLIGRAM, QD
     Route: 037
     Dates: start: 20230811
  7. HYDROCORTISONE [Suspect]
     Active Substance: HYDROCORTISONE
     Dosage: 12 MILLIGRAM, QD
     Route: 037
     Dates: start: 20230811
  8. HYDROCORTISONE [Suspect]
     Active Substance: HYDROCORTISONE
     Dosage: 12 MILLIGRAM, QD
     Dates: start: 20230811
  9. GLOFITAMAB [Suspect]
     Active Substance: GLOFITAMAB
     Indication: B-cell lymphoma
  10. GLOFITAMAB [Suspect]
     Active Substance: GLOFITAMAB
  11. GLOFITAMAB [Suspect]
     Active Substance: GLOFITAMAB
     Route: 042
  12. GLOFITAMAB [Suspect]
     Active Substance: GLOFITAMAB
     Route: 042
  13. GLOFITAMAB [Suspect]
     Active Substance: GLOFITAMAB
  14. GLOFITAMAB [Suspect]
     Active Substance: GLOFITAMAB
  15. GLOFITAMAB [Suspect]
     Active Substance: GLOFITAMAB
     Route: 042
  16. GLOFITAMAB [Suspect]
     Active Substance: GLOFITAMAB
     Route: 042
  17. OBINUTUZUMAB [Suspect]
     Active Substance: OBINUTUZUMAB
     Indication: B-cell lymphoma
     Route: 042
  18. OBINUTUZUMAB [Suspect]
     Active Substance: OBINUTUZUMAB
  19. OBINUTUZUMAB [Suspect]
     Active Substance: OBINUTUZUMAB
  20. OBINUTUZUMAB [Suspect]
     Active Substance: OBINUTUZUMAB
     Route: 042
  21. OBINUTUZUMAB [Suspect]
     Active Substance: OBINUTUZUMAB
     Route: 042
  22. OBINUTUZUMAB [Suspect]
     Active Substance: OBINUTUZUMAB
  23. OBINUTUZUMAB [Suspect]
     Active Substance: OBINUTUZUMAB
  24. OBINUTUZUMAB [Suspect]
     Active Substance: OBINUTUZUMAB
     Route: 042
  25. ETOPOSIDE [Suspect]
     Active Substance: ETOPOSIDE
     Indication: B-cell lymphoma
     Dosage: 90 MILLIGRAM, QD (ON 13/AUG/2023 RECEIVED MOST RECENT DOSE (90 MG) OF STUDY DRUG PRIOR TO EVENT)
     Dates: start: 20230811
  26. ETOPOSIDE [Suspect]
     Active Substance: ETOPOSIDE
     Dosage: 90 MILLIGRAM, QD (ON 13/AUG/2023 RECEIVED MOST RECENT DOSE (90 MG) OF STUDY DRUG PRIOR TO EVENT)
     Route: 042
     Dates: start: 20230811
  27. ETOPOSIDE [Suspect]
     Active Substance: ETOPOSIDE
     Dosage: 90 MILLIGRAM, QD (ON 13/AUG/2023 RECEIVED MOST RECENT DOSE (90 MG) OF STUDY DRUG PRIOR TO EVENT)
     Route: 042
     Dates: start: 20230811
  28. ETOPOSIDE [Suspect]
     Active Substance: ETOPOSIDE
     Dosage: 90 MILLIGRAM, QD (ON 13/AUG/2023 RECEIVED MOST RECENT DOSE (90 MG) OF STUDY DRUG PRIOR TO EVENT)
     Dates: start: 20230811
  29. MESNA [Suspect]
     Active Substance: MESNA
     Indication: B-cell lymphoma
     Dosage: 530 MILLIGRAM, QD (ON 14/AUG/2023 RECEIVED MOST RECENT DOSE OF STUDY DRUG PRIOR TO EVENT)
     Route: 042
     Dates: start: 20230811
  30. MESNA [Suspect]
     Active Substance: MESNA
     Dosage: 530 MILLIGRAM, QD (ON 14/AUG/2023 RECEIVED MOST RECENT DOSE OF STUDY DRUG PRIOR TO EVENT)
     Dates: start: 20230811
  31. MESNA [Suspect]
     Active Substance: MESNA
     Dosage: 530 MILLIGRAM, QD (ON 14/AUG/2023 RECEIVED MOST RECENT DOSE OF STUDY DRUG PRIOR TO EVENT)
     Dates: start: 20230811
  32. MESNA [Suspect]
     Active Substance: MESNA
     Dosage: 530 MILLIGRAM, QD (ON 14/AUG/2023 RECEIVED MOST RECENT DOSE OF STUDY DRUG PRIOR TO EVENT)
     Route: 042
     Dates: start: 20230811
  33. MESNA [Suspect]
     Active Substance: MESNA
     Route: 042
  34. MESNA [Suspect]
     Active Substance: MESNA
  35. MESNA [Suspect]
     Active Substance: MESNA
  36. MESNA [Suspect]
     Active Substance: MESNA
     Route: 042
  37. CARBOPLATIN [Suspect]
     Active Substance: CARBOPLATIN
     Indication: B-cell lymphoma
     Dosage: 565 MILLIGRAM, QD
     Dates: start: 20230811
  38. CARBOPLATIN [Suspect]
     Active Substance: CARBOPLATIN
     Dosage: 565 MILLIGRAM, QD
     Route: 042
     Dates: start: 20230811
  39. CARBOPLATIN [Suspect]
     Active Substance: CARBOPLATIN
     Dosage: 565 MILLIGRAM, QD
     Route: 042
     Dates: start: 20230811
  40. CARBOPLATIN [Suspect]
     Active Substance: CARBOPLATIN
     Dosage: 565 MILLIGRAM, QD
     Dates: start: 20230811
  41. CYTARABINE [Suspect]
     Active Substance: CYTARABINE
     Indication: B-cell lymphoma
  42. CYTARABINE [Suspect]
     Active Substance: CYTARABINE
     Route: 037
  43. CYTARABINE [Suspect]
     Active Substance: CYTARABINE
     Route: 037
  44. CYTARABINE [Suspect]
     Active Substance: CYTARABINE
  45. LENOGRASTIM [Suspect]
     Active Substance: LENOGRASTIM
     Indication: B-cell lymphoma
     Route: 042
  46. LENOGRASTIM [Suspect]
     Active Substance: LENOGRASTIM
  47. LENOGRASTIM [Suspect]
     Active Substance: LENOGRASTIM
  48. LENOGRASTIM [Suspect]
     Active Substance: LENOGRASTIM
     Route: 042
  49. LENOGRASTIM [Suspect]
     Active Substance: LENOGRASTIM
     Route: 042
  50. LENOGRASTIM [Suspect]
     Active Substance: LENOGRASTIM
  51. LENOGRASTIM [Suspect]
     Active Substance: LENOGRASTIM
  52. LENOGRASTIM [Suspect]
     Active Substance: LENOGRASTIM
     Route: 042
  53. IFOSFAMIDE [Suspect]
     Active Substance: IFOSFAMIDE
     Indication: B-cell lymphoma
  54. IFOSFAMIDE [Suspect]
     Active Substance: IFOSFAMIDE
     Route: 042
  55. IFOSFAMIDE [Suspect]
     Active Substance: IFOSFAMIDE
     Route: 042
  56. IFOSFAMIDE [Suspect]
     Active Substance: IFOSFAMIDE
  57. HYDROCORTISONE [Suspect]
     Active Substance: HYDROCORTISONE
     Indication: B-cell lymphoma
     Dosage: 7.5 MILLIGRAM, QD
     Dates: start: 20230405
  58. HYDROCORTISONE [Suspect]
     Active Substance: HYDROCORTISONE
     Dosage: 7.5 MILLIGRAM, QD
     Route: 048
     Dates: start: 20230405
  59. HYDROCORTISONE [Suspect]
     Active Substance: HYDROCORTISONE
     Dosage: 7.5 MILLIGRAM, QD
     Route: 048
     Dates: start: 20230405
  60. HYDROCORTISONE [Suspect]
     Active Substance: HYDROCORTISONE
     Dosage: 7.5 MILLIGRAM, QD
     Dates: start: 20230405
  61. HYDROCORTISONE [Concomitant]
     Active Substance: HYDROCORTISONE
     Indication: Product used for unknown indication
     Dosage: 5 MILLIGRAM, QD
  62. HYDROCORTISONE [Concomitant]
     Active Substance: HYDROCORTISONE
     Dosage: 5 MILLIGRAM, QD
     Route: 048
  63. HYDROCORTISONE [Concomitant]
     Active Substance: HYDROCORTISONE
     Dosage: 5 MILLIGRAM, QD
     Route: 048
  64. HYDROCORTISONE [Concomitant]
     Active Substance: HYDROCORTISONE
     Dosage: 5 MILLIGRAM, QD
  65. BACTRIM [Concomitant]
     Active Substance: SULFAMETHOXAZOLE\TRIMETHOPRIM
     Indication: Prophylaxis
     Route: 048
     Dates: start: 202302, end: 20230907
  66. BACTRIM [Concomitant]
     Active Substance: SULFAMETHOXAZOLE\TRIMETHOPRIM
     Dates: start: 202302, end: 20230907
  67. BACTRIM [Concomitant]
     Active Substance: SULFAMETHOXAZOLE\TRIMETHOPRIM
     Dates: start: 202302, end: 20230907
  68. BACTRIM [Concomitant]
     Active Substance: SULFAMETHOXAZOLE\TRIMETHOPRIM
     Route: 048
     Dates: start: 202302, end: 20230907
  69. BACTRIM [Concomitant]
     Active Substance: SULFAMETHOXAZOLE\TRIMETHOPRIM
     Route: 048
  70. BACTRIM [Concomitant]
     Active Substance: SULFAMETHOXAZOLE\TRIMETHOPRIM
  71. BACTRIM [Concomitant]
     Active Substance: SULFAMETHOXAZOLE\TRIMETHOPRIM
  72. BACTRIM [Concomitant]
     Active Substance: SULFAMETHOXAZOLE\TRIMETHOPRIM
     Route: 048
  73. OXYGEN [Concomitant]
     Active Substance: OXYGEN
     Indication: Product used for unknown indication
  74. OXYGEN [Concomitant]
     Active Substance: OXYGEN
     Route: 065
  75. OXYGEN [Concomitant]
     Active Substance: OXYGEN
     Route: 065
  76. OXYGEN [Concomitant]
     Active Substance: OXYGEN
  77. DOLIPRANE [Concomitant]
     Active Substance: ACETAMINOPHEN
     Indication: Pain
     Dates: start: 20230809, end: 20230810
  78. DOLIPRANE [Concomitant]
     Active Substance: ACETAMINOPHEN
     Dates: start: 20230809, end: 20230810
  79. DOLIPRANE [Concomitant]
     Active Substance: ACETAMINOPHEN
     Route: 048
     Dates: start: 20230809, end: 20230810
  80. DOLIPRANE [Concomitant]
     Active Substance: ACETAMINOPHEN
     Route: 048
     Dates: start: 20230809, end: 20230810
  81. DOLIPRANE [Concomitant]
     Active Substance: ACETAMINOPHEN
     Route: 048
     Dates: start: 20230809, end: 20230828
  82. DOLIPRANE [Concomitant]
     Active Substance: ACETAMINOPHEN
     Route: 048
     Dates: start: 20230809, end: 20230828
  83. DOLIPRANE [Concomitant]
     Active Substance: ACETAMINOPHEN
     Dates: start: 20230809, end: 20230828
  84. DOLIPRANE [Concomitant]
     Active Substance: ACETAMINOPHEN
     Dates: start: 20230809, end: 20230828
  85. DOLIPRANE [Concomitant]
     Active Substance: ACETAMINOPHEN
     Dosage: 300 MILLIGRAM, QD
     Dates: start: 20230810, end: 20230813
  86. DOLIPRANE [Concomitant]
     Active Substance: ACETAMINOPHEN
     Dosage: 300 MILLIGRAM, QD
     Dates: start: 20230810, end: 20230813
  87. DOLIPRANE [Concomitant]
     Active Substance: ACETAMINOPHEN
     Dosage: 300 MILLIGRAM, QD
     Route: 048
     Dates: start: 20230810, end: 20230813
  88. DOLIPRANE [Concomitant]
     Active Substance: ACETAMINOPHEN
     Dosage: 300 MILLIGRAM, QD
     Route: 048
     Dates: start: 20230810, end: 20230813
  89. DOLIPRANE [Concomitant]
     Active Substance: ACETAMINOPHEN
     Dosage: 350 MILLIGRAM, QD
     Route: 048
     Dates: start: 20230818, end: 20230818
  90. DOLIPRANE [Concomitant]
     Active Substance: ACETAMINOPHEN
     Dosage: 350 MILLIGRAM, QD
     Dates: start: 20230818, end: 20230818
  91. DOLIPRANE [Concomitant]
     Active Substance: ACETAMINOPHEN
     Dosage: 350 MILLIGRAM, QD
     Dates: start: 20230818, end: 20230818
  92. DOLIPRANE [Concomitant]
     Active Substance: ACETAMINOPHEN
     Dosage: 350 MILLIGRAM, QD
     Route: 048
     Dates: start: 20230818, end: 20230818
  93. DOLIPRANE [Concomitant]
     Active Substance: ACETAMINOPHEN
     Dosage: 350 MILLIGRAM, QD
     Route: 048
     Dates: start: 20230828, end: 20230828
  94. DOLIPRANE [Concomitant]
     Active Substance: ACETAMINOPHEN
     Dosage: 350 MILLIGRAM, QD
     Route: 048
     Dates: start: 20230828, end: 20230828
  95. DOLIPRANE [Concomitant]
     Active Substance: ACETAMINOPHEN
     Dosage: 350 MILLIGRAM, QD
     Dates: start: 20230828, end: 20230828
  96. DOLIPRANE [Concomitant]
     Active Substance: ACETAMINOPHEN
     Dosage: 350 MILLIGRAM, QD
     Dates: start: 20230828, end: 20230828
  97. ATARAX [Concomitant]
     Active Substance: HYDROXYZINE HYDROCHLORIDE
     Indication: Anxiety
     Dosage: 20 MILLIGRAM, QD
     Dates: start: 20230812, end: 20230818
  98. ATARAX [Concomitant]
     Active Substance: HYDROXYZINE HYDROCHLORIDE
     Dosage: 20 MILLIGRAM, QD
     Route: 048
     Dates: start: 20230812, end: 20230818
  99. ATARAX [Concomitant]
     Active Substance: HYDROXYZINE HYDROCHLORIDE
     Dosage: 20 MILLIGRAM, QD
     Route: 048
     Dates: start: 20230812, end: 20230818
  100. ATARAX [Concomitant]
     Active Substance: HYDROXYZINE HYDROCHLORIDE
     Dosage: 20 MILLIGRAM, QD
     Dates: start: 20230812, end: 20230818
  101. INTRATECT [Concomitant]
     Active Substance: HUMAN IMMUNOGLOBULIN G
     Indication: Product used for unknown indication
     Dosage: 10 GRAM, QD
     Dates: start: 20230822, end: 20230822
  102. INTRATECT [Concomitant]
     Active Substance: HUMAN IMMUNOGLOBULIN G
     Dosage: 10 GRAM, QD
     Route: 042
     Dates: start: 20230822, end: 20230822
  103. INTRATECT [Concomitant]
     Active Substance: HUMAN IMMUNOGLOBULIN G
     Dosage: 10 GRAM, QD
     Route: 042
     Dates: start: 20230822, end: 20230822
  104. INTRATECT [Concomitant]
     Active Substance: HUMAN IMMUNOGLOBULIN G
     Dosage: 10 GRAM, QD
     Dates: start: 20230822, end: 20230822
  105. DEXAMETHASONE [Concomitant]
     Active Substance: DEXAMETHASONE
     Dosage: 12 MILLIGRAM, QD
     Dates: start: 20230809, end: 20230810
  106. DEXAMETHASONE [Concomitant]
     Active Substance: DEXAMETHASONE
     Dosage: 12 MILLIGRAM, QD
     Dates: start: 20230809, end: 20230810
  107. DEXAMETHASONE [Concomitant]
     Active Substance: DEXAMETHASONE
     Dosage: 12 MILLIGRAM, QD
     Route: 042
     Dates: start: 20230809, end: 20230810
  108. DEXAMETHASONE [Concomitant]
     Active Substance: DEXAMETHASONE
     Dosage: 12 MILLIGRAM, QD
     Route: 042
     Dates: start: 20230809, end: 20230810
  109. DEXAMETHASONE [Concomitant]
     Active Substance: DEXAMETHASONE
     Dosage: 12 MILLIGRAM, QD
     Dates: start: 20230818, end: 20230818
  110. DEXAMETHASONE [Concomitant]
     Active Substance: DEXAMETHASONE
     Dosage: 12 MILLIGRAM, QD
     Dates: start: 20230818, end: 20230818
  111. DEXAMETHASONE [Concomitant]
     Active Substance: DEXAMETHASONE
     Dosage: 12 MILLIGRAM, QD
     Route: 042
     Dates: start: 20230818, end: 20230818
  112. DEXAMETHASONE [Concomitant]
     Active Substance: DEXAMETHASONE
     Dosage: 12 MILLIGRAM, QD
     Route: 042
     Dates: start: 20230818, end: 20230818
  113. DEXAMETHASONE [Concomitant]
     Active Substance: DEXAMETHASONE
     Dosage: 10 MILLIGRAM, QD
     Dates: start: 20230828, end: 20230828
  114. DEXAMETHASONE [Concomitant]
     Active Substance: DEXAMETHASONE
     Dosage: 10 MILLIGRAM, QD
     Route: 042
     Dates: start: 20230828, end: 20230828
  115. DEXAMETHASONE [Concomitant]
     Active Substance: DEXAMETHASONE
     Dosage: 10 MILLIGRAM, QD
     Dates: start: 20230828, end: 20230828
  116. DEXAMETHASONE [Concomitant]
     Active Substance: DEXAMETHASONE
     Dosage: 10 MILLIGRAM, QD
     Route: 042
     Dates: start: 20230828, end: 20230828
  117. POLARAMINE [Concomitant]
     Active Substance: DEXCHLORPHENIRAMINE MALEATE
     Dosage: 5 MILLIGRAM, QD
     Dates: start: 20230809, end: 20230810
  118. POLARAMINE [Concomitant]
     Active Substance: DEXCHLORPHENIRAMINE MALEATE
     Dosage: 5 MILLIGRAM, QD
     Dates: start: 20230809, end: 20230810
  119. POLARAMINE [Concomitant]
     Active Substance: DEXCHLORPHENIRAMINE MALEATE
     Dosage: 5 MILLIGRAM, QD
     Route: 042
     Dates: start: 20230809, end: 20230810
  120. POLARAMINE [Concomitant]
     Active Substance: DEXCHLORPHENIRAMINE MALEATE
     Dosage: 5 MILLIGRAM, QD
     Route: 042
     Dates: start: 20230809, end: 20230810
  121. POLARAMINE [Concomitant]
     Active Substance: DEXCHLORPHENIRAMINE MALEATE
     Dosage: 5 MILLIGRAM, QD
     Dates: start: 20230818, end: 20230818
  122. POLARAMINE [Concomitant]
     Active Substance: DEXCHLORPHENIRAMINE MALEATE
     Dosage: 5 MILLIGRAM, QD
     Dates: start: 20230818, end: 20230818
  123. POLARAMINE [Concomitant]
     Active Substance: DEXCHLORPHENIRAMINE MALEATE
     Dosage: 5 MILLIGRAM, QD
     Route: 042
     Dates: start: 20230818, end: 20230818
  124. POLARAMINE [Concomitant]
     Active Substance: DEXCHLORPHENIRAMINE MALEATE
     Dosage: 5 MILLIGRAM, QD
     Route: 042
     Dates: start: 20230818, end: 20230818
  125. POLARAMINE [Concomitant]
     Active Substance: DEXCHLORPHENIRAMINE MALEATE
     Dosage: 5 MILLIGRAM, QD
     Dates: start: 20230828, end: 20230828
  126. POLARAMINE [Concomitant]
     Active Substance: DEXCHLORPHENIRAMINE MALEATE
     Dosage: 5 MILLIGRAM, QD
     Route: 042
     Dates: start: 20230828, end: 20230828
  127. POLARAMINE [Concomitant]
     Active Substance: DEXCHLORPHENIRAMINE MALEATE
     Dosage: 5 MILLIGRAM, QD
     Dates: start: 20230828, end: 20230828
  128. POLARAMINE [Concomitant]
     Active Substance: DEXCHLORPHENIRAMINE MALEATE
     Dosage: 5 MILLIGRAM, QD
     Route: 042
     Dates: start: 20230828, end: 20230828
  129. RASBURICASE [Concomitant]
     Active Substance: RASBURICASE
     Indication: Product used for unknown indication
     Dosage: 4.7 MILLIGRAM, QD
     Dates: start: 20230809, end: 20230810
  130. RASBURICASE [Concomitant]
     Active Substance: RASBURICASE
     Dosage: 4.7 MILLIGRAM, QD
     Route: 042
     Dates: start: 20230809, end: 20230810
  131. RASBURICASE [Concomitant]
     Active Substance: RASBURICASE
     Dosage: 4.7 MILLIGRAM, QD
     Route: 042
     Dates: start: 20230809, end: 20230810
  132. RASBURICASE [Concomitant]
     Active Substance: RASBURICASE
     Dosage: 4.7 MILLIGRAM, QD
     Dates: start: 20230809, end: 20230810
  133. AMOXICILLIN [Concomitant]
     Active Substance: AMOXICILLIN
     Indication: Gingivitis
     Dosage: 750 MILLIGRAM, Q8H
     Dates: start: 20230822, end: 20230828
  134. AMOXICILLIN [Concomitant]
     Active Substance: AMOXICILLIN
     Dosage: 750 MILLIGRAM, Q8H
     Route: 048
     Dates: start: 20230822, end: 20230828
  135. AMOXICILLIN [Concomitant]
     Active Substance: AMOXICILLIN
     Dosage: 750 MILLIGRAM, Q8H
     Route: 048
     Dates: start: 20230822, end: 20230828
  136. AMOXICILLIN [Concomitant]
     Active Substance: AMOXICILLIN
     Dosage: 750 MILLIGRAM, Q8H
     Dates: start: 20230822, end: 20230828
  137. HYDROXYZINE [Concomitant]
     Active Substance: HYDROXYZINE HYDROCHLORIDE
  138. HYDROXYZINE [Concomitant]
     Active Substance: HYDROXYZINE HYDROCHLORIDE
     Route: 065
  139. HYDROXYZINE [Concomitant]
     Active Substance: HYDROXYZINE HYDROCHLORIDE
     Route: 065
  140. HYDROXYZINE [Concomitant]
     Active Substance: HYDROXYZINE HYDROCHLORIDE
  141. ALOXI [Concomitant]
     Active Substance: PALONOSETRON HYDROCHLORIDE
     Indication: Vomiting
     Dosage: 260 MICROGRAM, QD
     Dates: start: 20230815
  142. ALOXI [Concomitant]
     Active Substance: PALONOSETRON HYDROCHLORIDE
     Dosage: 260 MICROGRAM, QD
     Route: 042
     Dates: start: 20230815
  143. ALOXI [Concomitant]
     Active Substance: PALONOSETRON HYDROCHLORIDE
     Dosage: 260 MICROGRAM, QD
     Route: 042
     Dates: start: 20230815
  144. ALOXI [Concomitant]
     Active Substance: PALONOSETRON HYDROCHLORIDE
     Dosage: 260 MICROGRAM, QD
     Dates: start: 20230815
  145. HALDOL [Concomitant]
     Active Substance: HALOPERIDOL
     Indication: Vomiting
     Dosage: 10 GTT DROPS, QD
     Dates: start: 20230811, end: 20230811
  146. HALDOL [Concomitant]
     Active Substance: HALOPERIDOL
     Dosage: 10 GTT DROPS, QD
     Route: 065
     Dates: start: 20230811, end: 20230811
  147. HALDOL [Concomitant]
     Active Substance: HALOPERIDOL
     Dosage: 10 GTT DROPS, QD
     Route: 065
     Dates: start: 20230811, end: 20230811
  148. HALDOL [Concomitant]
     Active Substance: HALOPERIDOL
     Dosage: 10 GTT DROPS, QD
     Dates: start: 20230811, end: 20230811

REACTIONS (1)
  - Cytokine release syndrome [Recovered/Resolved]

NARRATIVE: CASE EVENT DATE: 20230829
